FAERS Safety Report 5096635-6 (Version None)
Quarter: 2006Q3

REPORT INFORMATION
  Report Type: 
  Country: None (occurrence: None)
  Receive Date: 20060831
  Receipt Date: 20060814
  Transmission Date: 20061208
  Serious: Yes (Hospitalization, Other)
  Sender: FDA-Public Use
  Company Number: 6024251F

PATIENT
  Age: 60 Year
  Sex: Male

DRUGS (6)
  1. NIASPAN [Suspect]
     Indication: DYSLIPIDAEMIA
     Dosage: 375 MG QD PO
     Route: 048
     Dates: start: 20060526, end: 20060612
  2. SORTIS [Suspect]
     Indication: DYSLIPIDAEMIA
     Dosage: 40 MG PO
     Route: 048
     Dates: start: 20060101, end: 20060602
  3. ASPIRIN [Concomitant]
  4. ISCOVER (CLOPIDOGREL SULFATE) [Concomitant]
  5. CODIOVAN FORTE (VALSARTAN HYDROCHLOROTHIAZIDE) [Concomitant]
  6. PANTOZOL (PANTOPRAZOLE SODIUM) [Concomitant]

REACTIONS (3)
  - BLOOD CREATINE PHOSPHOKINASE INCREASED [None]
  - MUSCULAR WEAKNESS [None]
  - MYALGIA [None]
